FAERS Safety Report 8947304 (Version 1)
Quarter: 2012Q4

REPORT INFORMATION
  Report Type: 
  Country: GR (occurrence: GR)
  Receive Date: 20121205
  Receipt Date: 20121205
  Transmission Date: 20130627
  Serious: Yes (Other)
  Sender: FDA-Public Use
  Company Number: GR-ELI_LILLY_AND_COMPANY-GR201211008254

PATIENT
  Age: 36 Year
  Sex: Male

DRUGS (3)
  1. LADOSE [Suspect]
     Indication: DEPRESSION
     Dosage: 20 mg, qd
     Route: 048
     Dates: start: 20121120
  2. TAVOR [Concomitant]
     Indication: DEPRESSION
     Dosage: UNK
     Route: 048
     Dates: start: 201210
  3. REMERON [Concomitant]
     Indication: DEPRESSION
     Dosage: UNK
     Route: 048
     Dates: start: 201110

REACTIONS (2)
  - Throat tightness [Not Recovered/Not Resolved]
  - Choking sensation [Not Recovered/Not Resolved]
